FAERS Safety Report 7494620-8 (Version None)
Quarter: 2011Q2

REPORT INFORMATION
  Report Type: 
  Country: None (occurrence: None)
  Receive Date: 20110520
  Receipt Date: 20110519
  Transmission Date: 20111010
  Serious: Yes (Death)
  Sender: FDA-Public Use
  Company Number: PHHY2011US42714

PATIENT
  Sex: Male
  Weight: 80 kg

DRUGS (1)
  1. EXJADE [Suspect]
     Indication: IRON METABOLISM DISORDER
     Dosage: 1500 MG, DAILY
     Route: 048
     Dates: start: 20070713, end: 20110207

REACTIONS (1)
  - DEATH [None]
